FAERS Safety Report 9346555 (Version 1)
Quarter: 2013Q2

REPORT INFORMATION
  Report Type: Report from Study
  Country: JP (occurrence: JP)
  Receive Date: 20130613
  Receipt Date: 20130613
  Transmission Date: 20140414
  Serious: Yes (Other)
  Sender: FDA-Public Use
  Company Number: JP-009507513-1305JPN006025

PATIENT
  Age: 17 Year
  Sex: Male

DRUGS (1)
  1. REMERON TABLETS 15MG [Suspect]
     Dosage: 1 DF, QD
     Route: 048
     Dates: start: 20110113, end: 20110113

REACTIONS (2)
  - Convulsion [Recovered/Resolved]
  - Somnolence [Recovered/Resolved]
